FAERS Safety Report 7964491-1 (Version None)
Quarter: 2011Q4

REPORT INFORMATION
  Report Type: 
  Country: None (occurrence: None)
  Receive Date: 20111208
  Receipt Date: 20111123
  Transmission Date: 20120403
  Serious: Yes (Other)
  Sender: FDA-Public Use
  Company Number: DK-CELGENEUS-044-C5013-11110006

PATIENT
  Sex: Male

DRUGS (17)
  1. DEXAMETHASONE [Suspect]
     Route: 065
     Dates: start: 20091019, end: 20100615
  2. DEXAMETHASONE [Suspect]
     Route: 065
     Dates: start: 20101022, end: 20110527
  3. BORTEZOMIB [Suspect]
     Indication: MULTIPLE MYELOMA
     Route: 065
     Dates: start: 20080421, end: 20080808
  4. METFORMIN HCL [Concomitant]
     Route: 065
     Dates: end: 20111031
  5. LENALIDOMIDE [Suspect]
     Indication: MULTIPLE MYELOMA
     Route: 048
     Dates: start: 20071109, end: 20080314
  6. DOXORUBICIN HCL [Suspect]
     Indication: MULTIPLE MYELOMA
     Route: 065
     Dates: start: 20080421, end: 20080808
  7. LENALIDOMIDE [Suspect]
     Route: 048
     Dates: start: 20091019, end: 20100615
  8. ALKERAN [Suspect]
     Indication: MULTIPLE MYELOMA
     Route: 065
     Dates: start: 20071109, end: 20080314
  9. PREDNISONE TAB [Suspect]
     Indication: MULTIPLE MYELOMA
     Route: 065
     Dates: start: 20071109, end: 20080314
  10. INSULIN [Concomitant]
     Route: 065
     Dates: start: 20111031
  11. CYCLOPHOSPHAMIDE [Suspect]
     Indication: MULTIPLE MYELOMA
     Route: 065
     Dates: start: 20080421, end: 20080808
  12. BORTEZOMIB [Suspect]
     Route: 065
     Dates: start: 20091019, end: 20100615
  13. LENALIDOMIDE [Suspect]
     Route: 048
     Dates: start: 20101022, end: 20110527
  14. DEXAMETHASONE [Suspect]
     Indication: MULTIPLE MYELOMA
     Route: 065
     Dates: start: 20080421, end: 20080808
  15. DOXORUBICIN HCL [Suspect]
     Route: 065
     Dates: start: 20091019, end: 20100615
  16. CYCLOPHOSPHAMIDE [Suspect]
     Route: 065
     Dates: start: 20091019, end: 20100615
  17. SIMVASTATIN [Concomitant]
     Route: 065

REACTIONS (1)
  - SQUAMOUS CELL CARCINOMA OF SKIN [None]
